FAERS Safety Report 4547371-3 (Version None)
Quarter: 2005Q1

REPORT INFORMATION
  Report Type: 
  Country: None (occurrence: None)
  Receive Date: 20050107
  Receipt Date: 20050104
  Transmission Date: 20050727
  Serious: Yes (Hospitalization)
  Sender: FDA-Public Use
  Company Number: US-GLAXOSMITHKLINE-A0539228A

PATIENT
  Age: 85 Year
  Sex: Male

DRUGS (2)
  1. TUMS E-X TABLETS, SUGAR FREE ORANGE [Suspect]
     Indication: DYSPEPSIA
     Route: 048
  2. THYROID TAB [Concomitant]
     Indication: HYPOTHYROIDISM
     Route: 048

REACTIONS (8)
  - CATARACT [None]
  - GASTRIC ULCER [None]
  - LENS DISORDER [None]
  - MACULAR DEGENERATION [None]
  - PAIN [None]
  - PEPTIC ULCER [None]
  - STOMACH DISCOMFORT [None]
  - VISUAL ACUITY REDUCED [None]
